FAERS Safety Report 9016844 (Version 1)
Quarter: 2013Q1

REPORT INFORMATION
  Report Type: Spontaneous
  Country: DE (occurrence: DE)
  Receive Date: 20130117
  Receipt Date: 20130117
  Transmission Date: 20140127
  Serious: Yes (Other)
  Sender: FDA-Public Use
  Company Number: DE-JNJFOC-20130107434

PATIENT
  Sex: Female

DRUGS (1)
  1. TRAMAL [Suspect]
     Indication: PRODUCT USED FOR UNKNOWN INDICATION
     Route: 065

REACTIONS (3)
  - Unresponsive to stimuli [Unknown]
  - Delirium [Unknown]
  - Aggression [Unknown]
